FAERS Safety Report 10417827 (Version 1)
Quarter: 2014Q2

REPORT INFORMATION
  Report Type: Spontaneous
  Country: US (occurrence: None)
  Receive Date: 20140610
  Receipt Date: 20140610
  Transmission Date: 20141212
  Serious: Yes (Other)
  Sender: FDA-Public Use
  Company Number: 2014GMK009364

PATIENT
  Age: 46 Year
  Sex: Female

DRUGS (8)
  1. NORETHINDRONE ACETATE [Suspect]
     Indication: ENDOMETRIOSIS
     Route: 048
     Dates: start: 201312
  2. LEUPRORELIN ACETATE [Suspect]
     Indication: ENDOMETRIOSIS
     Dates: start: 20140313
  3. MOTRIN (IBUPROFEN) [Concomitant]
  4. TRAMADOL [Concomitant]
  5. TYLENOL /0020001/ (PARACETAMOL) [Concomitant]
  6. IRON [Concomitant]
  7. VITAMIN D3 (COLECALCIFEROL) [Concomitant]
  8. BENADRYL (DIPHENHYDRAMINE HYDROCHLORIDE) [Concomitant]

REACTIONS (4)
  - Vaginal haemorrhage [None]
  - Uterine pain [None]
  - Menorrhagia [None]
  - Activities of daily living impaired [None]
